FAERS Safety Report 19681088 (Version 1)
Quarter: 2021Q3

REPORT INFORMATION
  Report Type: Report from Study
  Country: US (occurrence: US)
  Receive Date: 20210810
  Receipt Date: 20210810
  Transmission Date: 20211014
  Serious: Yes (Other)
  Sender: FDA-Public Use
  Company Number: US-SA-2021SA226345

PATIENT
  Age: 20 Year
  Sex: Female

DRUGS (2)
  1. DUPILUMAB [Suspect]
     Active Substance: DUPILUMAB
     Indication: ECZEMA
     Dosage: 600 MG, 1X
     Route: 058
     Dates: start: 20210706, end: 20210706
  2. DUPILUMAB [Suspect]
     Active Substance: DUPILUMAB
     Indication: DERMATITIS ATOPIC
     Dosage: 300 MG, QOW
     Route: 058
     Dates: start: 20210720, end: 20210720

REACTIONS (16)
  - Lymphadenopathy [Unknown]
  - Injection site urticaria [Unknown]
  - Tonsillar hypertrophy [Unknown]
  - Skin reaction [Unknown]
  - Oropharyngeal pain [Not Recovered/Not Resolved]
  - Urticaria [Unknown]
  - Skin ulcer [Recovered/Resolved]
  - Injection site swelling [Not Recovered/Not Resolved]
  - Pallor [Unknown]
  - Product preparation error [Unknown]
  - Loss of consciousness [Unknown]
  - Malaise [Unknown]
  - Injection site erythema [Not Recovered/Not Resolved]
  - Nervousness [Unknown]
  - Dysphagia [Unknown]
  - Injection site rash [Not Recovered/Not Resolved]

NARRATIVE: CASE EVENT DATE: 20210706
